FAERS Safety Report 25030311 (Version 2)
Quarter: 2025Q1

REPORT INFORMATION
  Report Type: Spontaneous
  Country: US (occurrence: US)
  Receive Date: 20250303
  Receipt Date: 20250313
  Transmission Date: 20250408
  Serious: Yes (Hospitalization, Other)
  Sender: AMGEN
  Company Number: US-AMGEN-USASP2025038167

PATIENT
  Age: 72 Year
  Sex: Male

DRUGS (2)
  1. REPATHA [Suspect]
     Active Substance: EVOLOCUMAB
     Indication: Product used for unknown indication
     Dosage: 140 MILLIGRAM, Q2WK
     Route: 058
  2. REPATHA [Suspect]
     Active Substance: EVOLOCUMAB
     Route: 058

REACTIONS (11)
  - Skin haemorrhage [Unknown]
  - Atrioventricular block complete [Unknown]
  - Loss of consciousness [Unknown]
  - Cardiac arrest [Unknown]
  - Myocarditis [Unknown]
  - Syncope [Unknown]
  - Rheumatoid lung [Unknown]
  - COVID-19 [Recovered/Resolved]
  - Influenza [Unknown]
  - Incorrect dose administered by product [Unknown]
  - Device difficult to use [Unknown]

NARRATIVE: CASE EVENT DATE: 20240201
